FAERS Safety Report 12478386 (Version 1)
Quarter: 2016Q2

REPORT INFORMATION
  Report Type: Other
  Country: GB (occurrence: GB)
  Receive Date: 20160618
  Receipt Date: 20160618
  Transmission Date: 20160815
  Serious: Yes (Disabling)
  Sender: FDA-Public Use
  Company Number: GB-CLARIS PHARMASERVICES-1053987

PATIENT
  Age: 39 Year
  Sex: Female

DRUGS (28)
  1. MAGNASPARTATE [Concomitant]
  2. METRONIDAZOLE. [Suspect]
     Active Substance: METRONIDAZOLE
     Indication: INFECTION
     Route: 042
     Dates: start: 20160121
  3. ADCAL-D3 [Concomitant]
     Active Substance: CALCIUM CARBONATE\CHOLECALCIFEROL
     Route: 048
  4. FLUCONAZOLE. [Concomitant]
     Active Substance: FLUCONAZOLE
     Route: 048
  5. KETAMINE [Concomitant]
     Active Substance: KETAMINE
  6. METOCLOPRAMIDE. [Concomitant]
     Active Substance: METOCLOPRAMIDE
  7. PARACETAMOL [Concomitant]
     Active Substance: ACETAMINOPHEN
  8. AMITRIPTYLINE [Concomitant]
     Active Substance: AMITRIPTYLINE
  9. BIOTENE DRY MOUTH [Concomitant]
  10. DOUBLEBASE [Concomitant]
     Active Substance: ISOPROPYL MYRISTATE\PARAFFIN
  11. MEROPENEM. [Concomitant]
     Active Substance: MEROPENEM
  12. CLONAZEPAM. [Concomitant]
     Active Substance: CLONAZEPAM
  13. CYCLIZINE [Concomitant]
     Active Substance: CYCLIZINE
  14. DAPTOMYCIN. [Concomitant]
     Active Substance: DAPTOMYCIN
  15. LANSOPRAZOLE. [Concomitant]
     Active Substance: LANSOPRAZOLE
  16. SEVREDOL [Concomitant]
     Active Substance: MORPHINE
  17. TEICOPLANIN [Concomitant]
     Active Substance: TEICOPLANIN
  18. TRIMETHOPRIM. [Concomitant]
     Active Substance: TRIMETHOPRIM
     Route: 048
  19. DEXAMETHASONE. [Concomitant]
     Active Substance: DEXAMETHASONE
  20. EXEMESTANE. [Concomitant]
     Active Substance: EXEMESTANE
  21. CLINDAMYCIN [Concomitant]
     Active Substance: CLINDAMYCIN\CLINDAMYCIN PHOSPHATE
  22. DIAMORPHINE [Concomitant]
     Active Substance: DIACETYLMORPHINE
  23. ENOXAPARIN [Concomitant]
     Active Substance: ENOXAPARIN
     Route: 058
  24. FORCEVAL [Concomitant]
     Active Substance: FOLIC ACID\IRON\MINERALS\VITAMINS
  25. MST CONTINUS [Concomitant]
     Active Substance: MORPHINE SULFATE
  26. ONDANSETRON [Concomitant]
     Active Substance: ONDANSETRON
  27. DOCUSATE SODIUM. [Concomitant]
     Active Substance: DOCUSATE SODIUM
  28. PREGABALIN. [Concomitant]
     Active Substance: PREGABALIN

REACTIONS (2)
  - Neuropathy peripheral [Not Recovered/Not Resolved]
  - Peroneal nerve palsy [Not Recovered/Not Resolved]

NARRATIVE: CASE EVENT DATE: 20160211
